FAERS Safety Report 9779060 (Version 2)
Quarter: 2013Q4

REPORT INFORMATION
  Report Type: Spontaneous
  Country: BR (occurrence: BR)
  Receive Date: 20131223
  Receipt Date: 20131230
  Transmission Date: 20140711
  Serious: Yes (Other)
  Sender: FDA-Public Use
  Company Number: BR-PFIZER INC-2013363375

PATIENT
  Age: 72 Year
  Sex: Female
  Weight: 66 kg

DRUGS (3)
  1. LIPITOR [Suspect]
     Indication: BLOOD CHOLESTEROL INCREASED
     Dosage: 40 MG, DAILY
     Route: 048
     Dates: start: 2009
  2. SYNTHROID [Concomitant]
     Indication: THYROID DISORDER
     Dosage: UNK
     Dates: start: 2005
  3. TORLOS-H [Concomitant]
     Indication: BLOOD PRESSURE INCREASED
     Dosage: 1 DF, DAILY
     Dates: start: 2003

REACTIONS (4)
  - Arthropathy [Recovering/Resolving]
  - Local swelling [Recovering/Resolving]
  - Pain [Recovering/Resolving]
  - Gait disturbance [Recovering/Resolving]
